FAERS Safety Report 8305143-8 (Version None)
Quarter: 2012Q2

REPORT INFORMATION
  Report Type: 
  Country: None (occurrence: None)
  Receive Date: 20120423
  Receipt Date: 20120412
  Transmission Date: 20120825
  Serious: Yes (Other)
  Sender: FDA-Public Use
  Company Number: US-ASTRAZENECA-2012SE07933

PATIENT
  Age: 55 Year
  Sex: Female

DRUGS (2)
  1. NEXIUM [Suspect]
     Route: 048
  2. SYMBICORT [Suspect]
     Route: 055

REACTIONS (6)
  - UNDERWEIGHT [None]
  - OSTEOPOROSIS [None]
  - MENOPAUSE [None]
  - CARDIAC DISORDER [None]
  - COUGH [None]
  - MULTIPLE FRACTURES [None]
